FAERS Safety Report 10729995 (Version 1)
Quarter: 2015Q1

REPORT INFORMATION
  Report Type: Spontaneous
  Country: US (occurrence: None)
  Receive Date: 20150120
  Receipt Date: 20150120
  Transmission Date: 20150721
  Serious: No
  Sender: FDA-Public Use
  Company Number: None

PATIENT
  Age: 51 Year
  Sex: Male
  Weight: 68.04 kg

DRUGS (2)
  1. TIZANIDINE (TIZANIDINE) [Suspect]
     Active Substance: TIZANIDINE
     Indication: NEUROPATHY PERIPHERAL
     Dosage: 1 EVERY 6 HOURS AS NEEDED ?TWICE DAILY?TAKEN BY MOUTH
     Route: 048
  2. TIZANIDINE (TIZANIDINE) [Suspect]
     Active Substance: TIZANIDINE
     Indication: MUSCLE SPASMS
     Dosage: 1 EVERY 6 HOURS AS NEEDED ?TWICE DAILY?TAKEN BY MOUTH
     Route: 048

REACTIONS (5)
  - Mood swings [None]
  - Hallucination [None]
  - Anger [None]
  - Crying [None]
  - Confusional state [None]

NARRATIVE: CASE EVENT DATE: 20141202
